FAERS Safety Report 8237181-8 (Version None)
Quarter: 2012Q1

REPORT INFORMATION
  Report Type: 
  Country: None (occurrence: None)
  Receive Date: 20120327
  Receipt Date: 20120315
  Transmission Date: 20120608
  Serious: Yes (Death)
  Sender: FDA-Public Use
  Company Number: US-BAXTER-2012BH007766

PATIENT
  Sex: Male

DRUGS (5)
  1. DIANEAL PD-2 W/ DEXTROSE 1.5% [Suspect]
     Route: 033
     Dates: start: 20070713, end: 20120308
  2. DIANEAL [Suspect]
     Route: 033
     Dates: start: 20070713, end: 20120308
  3. DIANEAL PD-2 W/ DEXTROSE 1.5% [Suspect]
     Indication: PERITONEAL DIALYSIS
     Route: 033
     Dates: start: 20070713, end: 20120308
  4. DIANEAL [Suspect]
     Indication: PERITONEAL DIALYSIS
     Route: 033
     Dates: start: 20070713, end: 20120308
  5. DIANEAL [Suspect]
     Route: 033
     Dates: start: 20070713, end: 20120308

REACTIONS (2)
  - LUNG DISORDER [None]
  - RENAL FAILURE [None]
